FAERS Safety Report 18887750 (Version 4)
Quarter: 2021Q1

REPORT INFORMATION
  Report Type: Spontaneous
  Country: US (occurrence: US)
  Receive Date: 20210212
  Receipt Date: 20210225
  Transmission Date: 20210420
  Serious: No
  Sender: FDA-Public Use
  Company Number: US-ALLERGAN-2104522US

PATIENT
  Sex: Female

DRUGS (3)
  1. CAMILA [Concomitant]
     Active Substance: NORETHINDRONE
     Dosage: 1 DF, QD
     Route: 048
     Dates: start: 20200625
  2. IBU [Concomitant]
     Active Substance: IBUPROFEN
     Dosage: 1 DF, Q8HR
     Dates: start: 20190821
  3. LILETTA [Suspect]
     Active Substance: LEVONORGESTREL
     Indication: CONTRACEPTION
     Dosage: 52 MG, SINGLE
     Route: 015
     Dates: start: 20201202

REACTIONS (4)
  - Device breakage [Unknown]
  - Device expulsion [Unknown]
  - Embedded device [Recovered/Resolved]
  - Metrorrhagia [Unknown]
